FAERS Safety Report 8096763-7 (Version None)
Quarter: 2012Q1

REPORT INFORMATION
  Report Type: 
  Country: None (occurrence: None)
  Receive Date: 20120129
  Receipt Date: 20111209
  Transmission Date: 20120608
  Serious: No
  Sender: FDA-Public Use
  Company Number: US-ABBOTT-11P-163-0863037-00

PATIENT
  Age: 32 Year
  Sex: Female

DRUGS (7)
  1. CALCIUM [Concomitant]
     Indication: STEROID THERAPY
  2. CALCIUM [Concomitant]
     Indication: OSTEOPOROSIS
  3. HUMIRA [Suspect]
     Indication: CROHN'S DISEASE
     Dates: start: 20110801
  4. PREDNISONE TAB [Concomitant]
     Indication: CROHN'S DISEASE
     Dosage: DECREASING 2 MG EVERY WEEK, STARTED AT 60MG PRIOR TO DAILY, DECREASING 2 MG EVERY WEEK
  5. PREDNISONE TAB [Concomitant]
     Dosage: STARTED PRE-HUMIRA
  6. IRON [Concomitant]
     Indication: ANAEMIA
  7. ONE-A-DAY VITAMINS [Concomitant]
     Indication: VITAMIN SUPPLEMENTATION

REACTIONS (7)
  - FATIGUE [None]
  - INJECTION SITE PAIN [None]
  - INJECTION SITE HAEMATOMA [None]
  - CONTUSION [None]
  - WEIGHT INCREASED [None]
  - DYSPNOEA [None]
  - THYROID FUNCTION TEST ABNORMAL [None]
